FAERS Safety Report 18478536 (Version 1)
Quarter: 2020Q4

REPORT INFORMATION
  Report Type: Spontaneous
  Country: US (occurrence: US)
  Receive Date: 20201109
  Receipt Date: 20201109
  Transmission Date: 20210114
  Serious: Yes (Death)
  Sender: FDA-Public Use
  Company Number: US-SA-2020SA311080

PATIENT

DRUGS (1)
  1. MULTAQ [Suspect]
     Active Substance: DRONEDARONE
     Indication: ATRIAL FIBRILLATION
     Dosage: 400 MG, QD

REACTIONS (4)
  - Abdominal pain upper [Fatal]
  - Vomiting [Fatal]
  - Diarrhoea [Fatal]
  - Back pain [Fatal]
